FAERS Safety Report 6562593-8 (Version None)
Quarter: 2010Q1

REPORT INFORMATION
  Report Type: 
  Country: None (occurrence: None)
  Receive Date: 20100130
  Receipt Date: 20091119
  Transmission Date: 20100710
  Serious: No
  Sender: FDA-Public Use
  Company Number: US-ABBOTT-09P-163-0609973-00

PATIENT
  Sex: Female
  Weight: 68.1 kg

DRUGS (12)
  1. HUMIRA [Suspect]
     Indication: RHEUMATOID ARTHRITIS
     Dates: start: 20060101
  2. ETODOLAC [Concomitant]
     Indication: ANTIINFLAMMATORY THERAPY
  3. LEVOTHYROXINE SODIUM [Concomitant]
     Indication: HYPOTHYROIDISM
  4. PRAVASTATIN [Concomitant]
     Indication: BLOOD CHOLESTEROL INCREASED
  5. ALPRAZOLAM [Concomitant]
     Indication: ANXIETY
  6. ZOLOFT [Concomitant]
     Indication: DEPRESSION
  7. RISPERDAL [Concomitant]
     Indication: AFFECTIVE DISORDER
  8. ASPIRIN [Concomitant]
     Indication: DRUG USE FOR UNKNOWN INDICATION
  9. MULTIVITAMIN WITH MINERALS [Concomitant]
     Indication: DRUG USE FOR UNKNOWN INDICATION
  10. FISH OIL [Concomitant]
     Indication: DRUG USE FOR UNKNOWN INDICATION
  11. POTASSIUM [Concomitant]
     Indication: DRUG USE FOR UNKNOWN INDICATION
  12. METOPROLOL [Concomitant]
     Indication: HYPERTENSION

REACTIONS (6)
  - BLOOD URINE PRESENT [None]
  - BRONCHITIS [None]
  - CYSTITIS [None]
  - MALAISE [None]
  - PYREXIA [None]
  - SINUSITIS [None]
